FAERS Safety Report 18417037 (Version 1)
Quarter: 2020Q4

REPORT INFORMATION
  Report Type: Spontaneous
  Country: KR (occurrence: KR)
  Receive Date: 20201022
  Receipt Date: 20201022
  Transmission Date: 20210114
  Serious: Yes (Other)
  Sender: FDA-Public Use
  Company Number: KR-GLAXOSMITHKLINE-KR2020GSK205551

PATIENT
  Age: 48 Year
  Sex: Male

DRUGS (4)
  1. CARVEDILOL. [Suspect]
     Active Substance: CARVEDILOL
     Indication: CARDIAC FAILURE
     Dosage: 3.125 MG
  2. IVABRADINE [Interacting]
     Active Substance: IVABRADINE
     Indication: CARDIAC FAILURE
     Dosage: 5 MG, BID
  3. FUROSEMIDE. [Interacting]
     Active Substance: FUROSEMIDE
     Indication: CARDIAC FAILURE ACUTE
     Dosage: UNK
     Route: 042
  4. TORSEMIDE. [Interacting]
     Active Substance: TORSEMIDE
     Indication: CARDIAC FAILURE ACUTE
     Dosage: UNK
     Route: 048

REACTIONS (11)
  - Electrocardiogram QT prolonged [Recovered/Resolved]
  - Ventricular tachycardia [Recovered/Resolved]
  - Hypotension [Recovered/Resolved]
  - Dyspnoea [Recovered/Resolved]
  - Torsade de pointes [Recovered/Resolved]
  - Chest X-ray abnormal [Unknown]
  - Ventricular extrasystoles [Recovered/Resolved]
  - Drug intolerance [Recovered/Resolved]
  - Syncope [Recovered/Resolved]
  - Dizziness [Recovered/Resolved]
  - Drug interaction [Unknown]
